FAERS Safety Report 5463871-6 (Version None)
Quarter: 2007Q3

REPORT INFORMATION
  Report Type: 
  Country: None (occurrence: None)
  Receive Date: 20070712
  Receipt Date: 20070227
  Transmission Date: 20080115
  Serious: Yes (Hospitalization)
  Sender: FDA-Public Use
  Company Number: 200711578

PATIENT
  Age: 59 Year
  Sex: Female
  Weight: 77.1115 kg

DRUGS (3)
  1. CARIMUNE NF (CSL BEHRING) [Suspect]
     Indication: COMBINED IMMUNODEFICIENCY
     Dosage: 42 G DAILY IV; 36 G QD IV
     Route: 042
     Dates: start: 20070116, end: 20070116
  2. CARIMUNE NF (CSL BEHRING) [Suspect]
     Indication: COMBINED IMMUNODEFICIENCY
     Dosage: 42 G DAILY IV; 36 G QD IV
     Route: 042
     Dates: start: 20070117, end: 20070119
  3. CARIMUNE NF (CSL BEHRING) [Suspect]

REACTIONS (3)
  - BLOOD CREATININE INCREASED [None]
  - OLIGURIA [None]
  - RENAL FAILURE [None]
